FAERS Safety Report 18066311 (Version 1)
Quarter: 2020Q3

REPORT INFORMATION
  Report Type: Spontaneous
  Country: GB (occurrence: GB)
  Receive Date: 20200724
  Receipt Date: 20200724
  Transmission Date: 20201103
  Serious: Yes (Other)
  Sender: FDA-Public Use
  Company Number: GB-PFIZER INC-2020277887

PATIENT
  Age: 51 Year
  Sex: Male
  Weight: 70 kg

DRUGS (4)
  1. ZEROCREAM [Concomitant]
     Dosage: APPLY AS OFTEN AS POSSIBLE
     Dates: start: 20200406
  2. TEGRETOL [Concomitant]
     Active Substance: CARBAMAZEPINE
     Dosage: 6 DF, 1X/DAY
     Dates: start: 20190604
  3. PREGABALIN. [Concomitant]
     Active Substance: PREGABALIN
     Dosage: 2 DF, 1X/DAY
     Dates: start: 20200611
  4. GABAPENTIN. [Suspect]
     Active Substance: GABAPENTIN
     Dosage: TAKE 1?2 THREE TIMES A DAY
     Dates: start: 20191108

REACTIONS (1)
  - Hypertension [Recovered/Resolved]
